FAERS Safety Report 4331249-4 (Version None)
Quarter: 2004Q1

REPORT INFORMATION
  Report Type: 
  Country: None (occurrence: None)
  Receive Date: 20040329
  Receipt Date: 20040318
  Transmission Date: 20041129
  Serious: Yes (Hospitalization, Other)
  Sender: FDA-Public Use
  Company Number: USA-2003-0010574

PATIENT
  Age: 48 Year
  Sex: Male
  Weight: 79.4 kg

DRUGS (23)
  1. OXYCONTIN [Suspect]
     Indication: PAIN
     Dosage: SEE IMAGE
     Route: 048
     Dates: start: 19970627
  2. AMBIEN [Concomitant]
  3. OXYCODONE HCL [Concomitant]
  4. PAXIL [Concomitant]
  5. VIOXX [Concomitant]
  6. XANAX [Concomitant]
  7. DEPAKOTE [Concomitant]
  8. LEXAPRO [Concomitant]
  9. KLONOPIN [Concomitant]
  10. PREVACID [Concomitant]
  11. PROPULSID [Concomitant]
  12. ENULOSE [Concomitant]
  13. ELAVIL [Concomitant]
  14. SERZONE [Concomitant]
  15. TYLENOL (CAPLET) [Concomitant]
  16. DULCOLAX [Concomitant]
  17. CELEBREX [Concomitant]
  18. INTERFERON (INTERFERON) [Concomitant]
  19. QUININE (QUININE) [Concomitant]
  20. DESERIL (METHYSERGIDE) [Concomitant]
  21. DOXEPIN (DOXEPIN) [Concomitant]
  22. COLACE [Concomitant]
  23. PEPCID [Concomitant]

REACTIONS (54)
  - ABDOMINAL PAIN [None]
  - ABNORMAL BEHAVIOUR [None]
  - AFFECT LABILITY [None]
  - AGGRESSION [None]
  - AGITATION [None]
  - AKATHISIA [None]
  - ANGER [None]
  - ANXIETY [None]
  - ATELECTASIS [None]
  - CONSTIPATION [None]
  - DENTAL CARIES [None]
  - DEPRESSED MOOD [None]
  - DIARRHOEA [None]
  - DRUG ABUSER [None]
  - DRUG DEPENDENCE [None]
  - DRUG SCREEN POSITIVE [None]
  - DYSPHONIA [None]
  - DYSPNOEA [None]
  - DYSURIA [None]
  - EMOTIONAL DISTRESS [None]
  - ERYTHEMA [None]
  - FALL [None]
  - GASTROOESOPHAGEAL REFLUX DISEASE [None]
  - HAEMATOCHEZIA [None]
  - HAEMATOCRIT DECREASED [None]
  - HAEMORRHOIDS [None]
  - HALLUCINATION, VISUAL [None]
  - HYPERHIDROSIS [None]
  - INJURY [None]
  - IRRITABILITY [None]
  - LOSS OF CONSCIOUSNESS [None]
  - LUNG CONSOLIDATION [None]
  - LYMPHADENITIS [None]
  - MUSCLE CRAMP [None]
  - NERVOUSNESS [None]
  - OEDEMA [None]
  - OVERDOSE [None]
  - PAIN [None]
  - PALPITATIONS [None]
  - PERICARDITIS [None]
  - PHYSICAL ASSAULT [None]
  - PLATELET COUNT DECREASED [None]
  - PLEURAL EFFUSION [None]
  - POLYSUBSTANCE ABUSE [None]
  - PRESSURE OF SPEECH [None]
  - RECTAL POLYP [None]
  - REFUSAL OF TREATMENT BY PATIENT [None]
  - ROAD TRAFFIC ACCIDENT [None]
  - SKIN LACERATION [None]
  - TOOTH ABSCESS [None]
  - TREMOR [None]
  - VICTIM OF CRIME [None]
  - VOMITING [None]
  - WHITE BLOOD CELL COUNT INCREASED [None]
